FAERS Safety Report 23544912 (Version 2)
Quarter: 2024Q1

REPORT INFORMATION
  Report Type: Spontaneous
  Country: US (occurrence: None)
  Receive Date: 20240220
  Receipt Date: 20240227
  Transmission Date: 20240410
  Serious: Yes (Other)
  Sender: FDA-Public Use
  Company Number: 2024A036356

PATIENT
  Age: 19495 Day
  Sex: Female

DRUGS (1)
  1. FULVESTRANT [Suspect]
     Active Substance: FULVESTRANT
     Route: 030
     Dates: start: 202305

REACTIONS (7)
  - Breast cancer stage IV [Unknown]
  - Haemorrhage [Unknown]
  - Nausea [Recovered/Resolved]
  - Vomiting [Unknown]
  - Illness [Unknown]
  - Injection site pain [Unknown]
  - Wrong technique in product usage process [Unknown]

NARRATIVE: CASE EVENT DATE: 20240209
